FAERS Safety Report 15954124 (Version 1)
Quarter: 2019Q1

REPORT INFORMATION
  Report Type: Report from Study
  Country: US (occurrence: US)
  Receive Date: 20190212
  Receipt Date: 20190212
  Transmission Date: 20190417
  Serious: Yes (Hospitalization)
  Sender: FDA-Public Use
  Company Number: US-ACTELION-A-US2019-185854

PATIENT
  Age: 30 Year
  Sex: Female
  Weight: 61.22 kg

DRUGS (4)
  1. UPTRAVI [Suspect]
     Active Substance: SELEXIPAG
     Dosage: 600 MCG, UNK
     Route: 048
     Dates: start: 20180521
  2. UPTRAVI [Suspect]
     Active Substance: SELEXIPAG
     Indication: PULMONARY ARTERIAL HYPERTENSION
     Dosage: 1000 MCG, UNK
     Route: 048
  3. UPTRAVI [Suspect]
     Active Substance: SELEXIPAG
     Dosage: 800 MCG, UNK
     Route: 048
  4. UPTRAVI [Suspect]
     Active Substance: SELEXIPAG
     Dosage: UNK
     Route: 048

REACTIONS (11)
  - Dyspnoea [Recovering/Resolving]
  - Pain in jaw [Recovering/Resolving]
  - Serum ferritin decreased [Recovering/Resolving]
  - Haemoglobin decreased [Recovering/Resolving]
  - Fluid overload [Recovered/Resolved]
  - Brain natriuretic peptide increased [Recovering/Resolving]
  - Haematocrit decreased [Recovering/Resolving]
  - Headache [Recovering/Resolving]
  - Diarrhoea [Recovering/Resolving]
  - Abdominal distension [Recovering/Resolving]
  - Iron binding capacity total increased [Recovering/Resolving]

NARRATIVE: CASE EVENT DATE: 201810
